FAERS Safety Report 8082635-0 (Version None)
Quarter: 2012Q1

REPORT INFORMATION
  Report Type: 
  Country: None (occurrence: None)
  Receive Date: 20120127
  Receipt Date: 20110224
  Transmission Date: 20120608
  Serious: No
  Sender: FDA-Public Use
  Company Number: US-ABBOTT-11P-163-0707343-00

PATIENT
  Age: 35 Year
  Sex: Male

DRUGS (5)
  1. HUMIRA [Suspect]
     Dosage: 40MG 16 FEB 2011
     Dates: start: 20110216
  2. HUMIRA [Suspect]
     Dosage: 160MG 16 FEB 2011
     Dates: start: 20110216, end: 20110216
  3. HUMIRA [Suspect]
     Indication: CROHN'S DISEASE
     Dosage: 160 MG
     Dates: start: 20110216
  4. PENTASA [Concomitant]
     Indication: CROHN'S DISEASE
  5. NEXIUM [Concomitant]
     Indication: GASTROOESOPHAGEAL REFLUX DISEASE

REACTIONS (1)
  - ABDOMINAL DISTENSION [None]
